FAERS Safety Report 26094826 (Version 1)
Quarter: 2025Q4

REPORT INFORMATION
  Report Type: Spontaneous
  Country: US (occurrence: US)
  Receive Date: 20251126
  Receipt Date: 20251126
  Transmission Date: 20260117
  Serious: No
  Sender: AMGEN
  Company Number: US-AMGEN-USASP2025231819

PATIENT
  Age: 65 Year
  Sex: Female

DRUGS (3)
  1. REPATHA [Suspect]
     Active Substance: EVOLOCUMAB
     Indication: Blood cholesterol increased
     Dosage: 140 MILLIGRAM, Q3WK
     Route: 058
     Dates: start: 2022
  2. REPATHA [Suspect]
     Active Substance: EVOLOCUMAB
     Dosage: 140 MILLIGRAM, Q2WK
     Route: 058
  3. ASPIRIN [Concomitant]
     Active Substance: ASPIRIN
     Dosage: 1 MILLIGRAM

REACTIONS (4)
  - Feeling abnormal [Unknown]
  - Device difficult to use [Unknown]
  - Drug dose omission by device [Unknown]
  - Off label use [Unknown]

NARRATIVE: CASE EVENT DATE: 20220101
